FAERS Safety Report 4318762-0 (Version None)
Quarter: 2004Q1

REPORT INFORMATION
  Report Type: 
  Country: None (occurrence: None)
  Receive Date: 20040316
  Receipt Date: 20040311
  Transmission Date: 20041129
  Serious: Yes (Disabling)
  Sender: FDA-Public Use
  Company Number: 04-03-0359

PATIENT
  Age: 38 Year
  Sex: Female

DRUGS (11)
  1. METRONIDAZOLE [Suspect]
     Indication: CROHN'S DISEASE
     Dosage: 400 MG TDS ORAL
     Route: 048
     Dates: start: 20031020, end: 20031215
  2. MORPHINE [Concomitant]
  3. PROCTOSEDY RECTAL [Concomitant]
  4. MAXOLON [Concomitant]
  5. ONDANSETRON 4MG [Concomitant]
  6. FRAGMIN [Concomitant]
  7. ACETAMINOPHEN [Concomitant]
  8. CYCLIZINE [Concomitant]
  9. PROCHLORPERAZINE [Concomitant]
  10. CO-CODAMOL [Concomitant]
  11. ORAMORPH SR [Concomitant]

REACTIONS (1)
  - OPTIC NEURITIS [None]
